FAERS Safety Report 8433719-6 (Version None)
Quarter: 2012Q2

REPORT INFORMATION
  Report Type: 
  Country: None (occurrence: None)
  Receive Date: 20120323
  Receipt Date: 20110819
  Transmission Date: 20120825
  Serious: Yes (Hospitalization)
  Sender: FDA-Public Use
  Company Number: 163-21880-11073141

PATIENT
  Age: 80 Year
  Sex: Female

DRUGS (9)
  1. ASPIRIN [Concomitant]
  2. NORVASC [Concomitant]
  3. NEXIUM [Concomitant]
  4. LOVENOX [Concomitant]
  5. REVLIMID [Suspect]
     Indication: MULTIPLE MYELOMA
     Dosage: 10 MG, DAILY FOR 21 DAYS THEN 7 DAYS OFF, PO, 10 MG, DAILY FOR 21 DAYS THEN 7 DAYS OFF, PO
     Route: 048
     Dates: start: 20110725
  6. REVLIMID [Suspect]
     Indication: MULTIPLE MYELOMA
     Dosage: 10 MG, DAILY FOR 21 DAYS THEN 7 DAYS OFF, PO, 10 MG, DAILY FOR 21 DAYS THEN 7 DAYS OFF, PO
     Route: 048
     Dates: start: 20110303, end: 20110629
  7. WARFARIN SODIUM [Concomitant]
  8. AVALIDE [Concomitant]
  9. STATIN (CHOLESTEROL- AND TRIGLYCERIDE REDUCERS) [Concomitant]

REACTIONS (1)
  - DEEP VEIN THROMBOSIS [None]
